APPROVED DRUG PRODUCT: FALLBACK SOLO
Active Ingredient: LEVONORGESTREL
Strength: 1.5MG
Dosage Form/Route: TABLET;ORAL
Application: A201446 | Product #001
Applicant: LUPIN LTD
Approved: Jun 19, 2014 | RLD: No | RS: No | Type: OTC